FAERS Safety Report 6633051-7 (Version None)
Quarter: 2010Q1

REPORT INFORMATION
  Report Type: 
  Country: None (occurrence: None)
  Receive Date: 20100312
  Receipt Date: 20100301
  Transmission Date: 20100710
  Serious: Yes (Other)
  Sender: FDA-Public Use
  Company Number: PHHY2010DE14232

PATIENT
  Sex: Female

DRUGS (1)
  1. EXTAVIA [Suspect]
     Indication: MULTIPLE SCLEROSIS
     Dosage: 0.75 DAILY
     Dates: start: 20091216, end: 20100216

REACTIONS (4)
  - CARDIOVASCULAR DISORDER [None]
  - HEADACHE [None]
  - INJECTION SITE REACTION [None]
  - NAUSEA [None]
